FAERS Safety Report 5244902-5 (Version None)
Quarter: 2007Q1

REPORT INFORMATION
  Report Type: 
  Country: None (occurrence: None)
  Receive Date: 20061201
  Receipt Date: 20060810
  Transmission Date: 20070707
  Serious: No
  Sender: FDA-Public Use
  Company Number: 2006PV019218

PATIENT
  Age: 57 Year
  Sex: Female
  Weight: 102.9665 kg

DRUGS (3)
  1. BYETTA [Suspect]
     Indication: DIABETES MELLITUS NON-INSULIN-DEPENDENT
     Dosage: 5 MCG;BID;SC
     Route: 058
     Dates: start: 20060708
  2. ACTOS [Concomitant]
  3. AMARYL [Concomitant]

REACTIONS (2)
  - DECREASED APPETITE [None]
  - WEIGHT DECREASED [None]
